FAERS Safety Report 14640314 (Version 1)
Quarter: 2018Q1

REPORT INFORMATION
  Report Type: Report from Study
  Country: CO (occurrence: CO)
  Receive Date: 20180315
  Receipt Date: 20180315
  Transmission Date: 20180509
  Serious: Yes (Hospitalization, Other)
  Sender: FDA-Public Use
  Company Number: PHHY2018CO030031

PATIENT
  Age: 48 Year
  Sex: Female
  Weight: 72 kg

DRUGS (3)
  1. GILENYA [Suspect]
     Active Substance: FINGOLIMOD HYDROCHLORIDE
     Indication: MULTIPLE SCLEROSIS
     Dosage: 0.5 MG, QD
     Route: 048
     Dates: start: 20170814
  2. CARBAMAZEPINE. [Suspect]
     Active Substance: CARBAMAZEPINE
     Indication: PRODUCT USED FOR UNKNOWN INDICATION
     Route: 065
  3. FLUOXETINE [Concomitant]
     Active Substance: FLUOXETINE HYDROCHLORIDE
     Indication: INSOMNIA
     Route: 065

REACTIONS (18)
  - Pyrexia [Unknown]
  - Chills [Unknown]
  - Blindness [Unknown]
  - Peripheral coldness [Unknown]
  - Dyskinesia [Unknown]
  - Swelling [Unknown]
  - Pain in extremity [Unknown]
  - Burning sensation [Unknown]
  - Muscle spasms [Unknown]
  - Multiple sclerosis relapse [Recovered/Resolved]
  - Malaise [Unknown]
  - Pain [Unknown]
  - Vomiting [Unknown]
  - Fatigue [Unknown]
  - Multiple sclerosis [Unknown]
  - Spinal pain [Unknown]
  - Movement disorder [Unknown]
  - Back pain [Unknown]

NARRATIVE: CASE EVENT DATE: 20171222
